FAERS Safety Report 11819898 (Version 4)
Quarter: 2016Q2

REPORT INFORMATION
  Report Type: Spontaneous
  Country: US (occurrence: US)
  Receive Date: 20151210
  Receipt Date: 20160609
  Transmission Date: 20160815
  Serious: No
  Sender: FDA-Public Use
  Company Number: US-JNJFOC-20151126499

PATIENT
  Age: 9 Year
  Sex: Male

DRUGS (16)
  1. RISPERIDONE. [Suspect]
     Active Substance: RISPERIDONE
     Indication: AFFECTIVE DISORDER
     Route: 048
     Dates: start: 201205, end: 201205
  2. RISPERIDONE. [Suspect]
     Active Substance: RISPERIDONE
     Indication: ATTENTION DEFICIT/HYPERACTIVITY DISORDER
     Route: 048
     Dates: start: 201110, end: 201204
  3. RISPERIDONE. [Suspect]
     Active Substance: RISPERIDONE
     Indication: ABNORMAL BEHAVIOUR
     Route: 048
     Dates: start: 201012, end: 201102
  4. RISPERIDONE. [Suspect]
     Active Substance: RISPERIDONE
     Indication: MAJOR DEPRESSION
     Route: 048
     Dates: start: 201110, end: 201204
  5. RISPERDAL [Suspect]
     Active Substance: RISPERIDONE
     Indication: PRODUCT USED FOR UNKNOWN INDICATION
     Route: 048
  6. RISPERIDONE. [Suspect]
     Active Substance: RISPERIDONE
     Indication: ATTENTION DEFICIT/HYPERACTIVITY DISORDER
     Route: 048
     Dates: start: 201205, end: 201205
  7. RISPERIDONE. [Suspect]
     Active Substance: RISPERIDONE
     Indication: TOURETTE^S DISORDER
     Route: 048
     Dates: start: 201012, end: 201102
  8. RISPERIDONE. [Suspect]
     Active Substance: RISPERIDONE
     Indication: AFFECTIVE DISORDER
     Route: 048
     Dates: start: 201110, end: 201204
  9. RISPERIDONE. [Suspect]
     Active Substance: RISPERIDONE
     Indication: ATTENTION DEFICIT/HYPERACTIVITY DISORDER
     Route: 048
     Dates: start: 201012, end: 201102
  10. RISPERIDONE. [Suspect]
     Active Substance: RISPERIDONE
     Indication: MAJOR DEPRESSION
     Route: 048
     Dates: start: 201012, end: 201102
  11. RISPERIDONE. [Suspect]
     Active Substance: RISPERIDONE
     Indication: AFFECTIVE DISORDER
     Route: 048
     Dates: start: 201012, end: 201102
  12. RISPERIDONE. [Suspect]
     Active Substance: RISPERIDONE
     Indication: MAJOR DEPRESSION
     Route: 048
     Dates: start: 201205, end: 201205
  13. RISPERIDONE. [Suspect]
     Active Substance: RISPERIDONE
     Indication: TOURETTE^S DISORDER
     Route: 048
     Dates: start: 201205, end: 201205
  14. RISPERIDONE. [Suspect]
     Active Substance: RISPERIDONE
     Indication: TOURETTE^S DISORDER
     Route: 048
     Dates: start: 201110, end: 201204
  15. RISPERIDONE. [Suspect]
     Active Substance: RISPERIDONE
     Indication: ABNORMAL BEHAVIOUR
     Route: 048
     Dates: start: 201205, end: 201205
  16. RISPERIDONE. [Suspect]
     Active Substance: RISPERIDONE
     Indication: ABNORMAL BEHAVIOUR
     Route: 048
     Dates: start: 201110, end: 201204

REACTIONS (2)
  - Gynaecomastia [Unknown]
  - Emotional distress [Unknown]

NARRATIVE: CASE EVENT DATE: 201205
